FAERS Safety Report 20371005 (Version 2)
Quarter: 2022Q1

REPORT INFORMATION
  Report Type: Spontaneous
  Country: US (occurrence: US)
  Receive Date: 20220124
  Receipt Date: 20220217
  Transmission Date: 20220424
  Serious: Yes (Hospitalization, Other)
  Sender: FDA-Public Use
  Company Number: US-SA-SAC20220121001036

PATIENT
  Age: 19 Year
  Sex: Female

DRUGS (9)
  1. DUPIXENT [Suspect]
     Active Substance: DUPILUMAB
     Indication: Dermatitis atopic
     Dosage: 300 MG, QOW
     Route: 058
     Dates: start: 20210204
  2. SINGULAIR [Concomitant]
     Active Substance: MONTELUKAST SODIUM
     Dosage: 10 MG
  3. FLONASE ALLERGY RELIEF [Concomitant]
     Active Substance: FLUTICASONE PROPIONATE
  4. ZINC [Concomitant]
     Active Substance: ZINC
     Dosage: 66 MG
  5. ALBUTEROL SULFATE [Concomitant]
     Active Substance: ALBUTEROL SULFATE
  6. LORATADINE [Concomitant]
     Active Substance: LORATADINE
     Dosage: UNK UNK, BID
  7. PRILOSEC [Concomitant]
     Active Substance: OMEPRAZOLE MAGNESIUM
     Dosage: 10 MG
  8. FLOVENT [Concomitant]
     Active Substance: FLUTICASONE PROPIONATE
  9. VITAMINS [Concomitant]
     Active Substance: VITAMINS

REACTIONS (7)
  - Pneumonia [Unknown]
  - Sepsis [Unknown]
  - Pyrexia [Unknown]
  - Peripheral swelling [Unknown]
  - Illness [Unknown]
  - Myalgia [Unknown]
  - Product dose omission in error [Unknown]

NARRATIVE: CASE EVENT DATE: 20211201
